FAERS Safety Report 14358288 (Version 1)
Quarter: 2018Q1

REPORT INFORMATION
  Report Type: Spontaneous
  Country: US (occurrence: US)
  Receive Date: 20180105
  Receipt Date: 20180105
  Transmission Date: 20180509
  Serious: No
  Sender: FDA-Public Use
  Company Number: US-SA-2017SA201011

PATIENT
  Age: 22 Year
  Sex: Female

DRUGS (1)
  1. DUPIXENT [Suspect]
     Active Substance: DUPILUMAB
     Indication: DERMATITIS ATOPIC
     Route: 058
     Dates: start: 201709

REACTIONS (5)
  - Rash erythematous [Unknown]
  - Pruritus [Unknown]
  - Product use issue [Unknown]
  - Dermatitis atopic [Unknown]
  - Dry skin [Unknown]

NARRATIVE: CASE EVENT DATE: 201709
